FAERS Safety Report 5514043-8 (Version None)
Quarter: 2007Q4

REPORT INFORMATION
  Report Type: 
  Country: None (occurrence: None)
  Receive Date: 20071113
  Receipt Date: 20071030
  Transmission Date: 20080405
  Serious: Yes (Hospitalization, Other)
  Sender: FDA-Public Use
  Company Number: US-ELI_LILLY_AND_COMPANY-US200710007414

PATIENT
  Age: 86 Year
  Sex: Female

DRUGS (2)
  1. FORTEO [Suspect]
     Indication: MULTIPLE FRACTURES
     Dosage: 20 UG, UNK
     Dates: start: 20060501, end: 20070529
  2. MIACALCIN [Concomitant]

REACTIONS (5)
  - BODY FAT DISORDER [None]
  - DUODENAL ULCER [None]
  - INJECTION SITE HAEMORRHAGE [None]
  - INTRA-ABDOMINAL HAEMORRHAGE [None]
  - PNEUMOPERITONEUM [None]
